FAERS Safety Report 14760416 (Version 2)
Quarter: 2018Q2

REPORT INFORMATION
  Report Type: Report from Study
  Country: JP (occurrence: JP)
  Receive Date: 20180414
  Receipt Date: 20180524
  Transmission Date: 20180711
  Serious: Yes (Death, Life-Threatening)
  Sender: FDA-Public Use
  Company Number: JP-CONCORDIA PHARMACEUTICALS INC.-GSH201804-001244

PATIENT
  Age: 59 Year
  Sex: Female

DRUGS (9)
  1. PARIET [Concomitant]
     Active Substance: RABEPRAZOLE SODIUM
  2. ALOSITOL [Concomitant]
     Active Substance: ALLOPURINOL
  3. CRESTOR [Concomitant]
     Active Substance: ROSUVASTATIN CALCIUM
  4. MOHRUS [Concomitant]
     Active Substance: KETOPROFEN
  5. PREDNISOLON [Concomitant]
     Active Substance: PREDNISOLONE
  6. IODINE. [Concomitant]
     Active Substance: IODINE
     Route: 065
  7. PLAQUENIL [Suspect]
     Active Substance: HYDROXYCHLOROQUINE SULFATE
     Indication: SYSTEMIC LUPUS ERYTHEMATOSUS
     Route: 048
     Dates: start: 20170329, end: 20170621
  8. SENNOSIDE [Concomitant]
     Active Substance: SENNOSIDES
  9. MIZORIBINE [Concomitant]
     Active Substance: MIZORIBINE

REACTIONS (3)
  - Compression fracture [Fatal]
  - Cardio-respiratory arrest [Fatal]
  - Cerebellar haemorrhage [Fatal]

NARRATIVE: CASE EVENT DATE: 20170621
